FAERS Safety Report 4787478-9 (Version None)
Quarter: 2005Q4

REPORT INFORMATION
  Report Type: 
  Country: None (occurrence: None)
  Receive Date: 20051003
  Receipt Date: 20050916
  Transmission Date: 20060501
  Serious: Yes (Death, Hospitalization)
  Sender: FDA-Public Use
  Company Number: 218114

PATIENT
  Age: 62 Year
  Sex: 0
  Weight: 113 kg

DRUGS (2)
  1. HERCEPTIN [Suspect]
     Indication: BREAST CANCER METASTATIC
     Dosage: 220 MG
     Dates: start: 20040209, end: 20050315
  2. VINORELBINE TARTRATE [Suspect]
     Indication: BREAST CANCER METASTATIC
     Dosage: 79 MG
     Dates: start: 20040209, end: 20050315

REACTIONS (3)
  - ABDOMINAL PAIN [None]
  - PYREXIA [None]
  - SEPTIC SHOCK [None]
